FAERS Safety Report 16465756 (Version 2)
Quarter: 2019Q3

REPORT INFORMATION
  Report Type: Report from Study
  Country: US (occurrence: US)
  Receive Date: 20190621
  Receipt Date: 20190709
  Transmission Date: 20191004
  Serious: Yes (Hospitalization, Other)
  Sender: FDA-Public Use
  Company Number: US-GILEAD-2019-0414670

PATIENT
  Age: 33 Year
  Sex: Female

DRUGS (1)
  1. AZTREONAM LYSINE [Suspect]
     Active Substance: AZTREONAM LYSINE
     Indication: CYSTIC FIBROSIS
     Dosage: 75 MG, 3 TIMES A DAY 28 DAYS ON AND 28 DAYS OFF, REPEAT
     Dates: start: 20180914

REACTIONS (4)
  - Cystic fibrosis respiratory infection suppression [Unknown]
  - Haemorrhage [Unknown]
  - Cystic fibrosis [Unknown]
  - Pulmonary function test decreased [Unknown]

NARRATIVE: CASE EVENT DATE: 20190611
